FAERS Safety Report 23168082 (Version 1)
Quarter: 2023Q4

REPORT INFORMATION
  Report Type: Report from Study
  Country: US (occurrence: US)
  Receive Date: 20231109
  Receipt Date: 20231109
  Transmission Date: 20240110
  Serious: Yes (Other)
  Sender: FDA-Public Use
  Company Number: US-ABBVIE-5487324

PATIENT
  Sex: Male

DRUGS (1)
  1. HUMIRA [Suspect]
     Active Substance: ADALIMUMAB
     Indication: Product used for unknown indication
     Dosage: STRENGTH: 40 MILLIGRAM?CITRATE FREE
     Route: 058
     Dates: start: 20150101

REACTIONS (3)
  - Ileocaecal resection [Not Recovered/Not Resolved]
  - Therapeutic product effect decreased [Unknown]
  - Injection site pain [Unknown]
